FAERS Safety Report 12289777 (Version 1)
Quarter: 2016Q2

REPORT INFORMATION
  Report Type: Spontaneous
  Country: PE (occurrence: PE)
  Receive Date: 20160421
  Receipt Date: 20160421
  Transmission Date: 20160815
  Serious: Yes (Other)
  Sender: FDA-Public Use
  Company Number: PE-NOVOPROD-487847

PATIENT
  Age: 35 Year
  Sex: Female

DRUGS (1)
  1. VICTOZA [Suspect]
     Active Substance: LIRAGLUTIDE
     Indication: INSULIN RESISTANCE
     Dosage: 0.6 MG, QD
     Route: 058
     Dates: end: 201602

REACTIONS (2)
  - Polycystic ovaries [Recovering/Resolving]
  - Product use issue [Recovered/Resolved]
